FAERS Safety Report 25445020 (Version 1)
Quarter: 2025Q2

REPORT INFORMATION
  Report Type: Spontaneous
  Country: CZ (occurrence: CZ)
  Receive Date: 20250617
  Receipt Date: 20250617
  Transmission Date: 20250717
  Serious: Yes (Hospitalization, Other)
  Sender: RANBAXY
  Company Number: CZ-SUN PHARMACEUTICAL INDUSTRIES INC-2025RR-512576

PATIENT
  Age: 78 Year
  Sex: Male

DRUGS (1)
  1. THEOPHYLLINE [Suspect]
     Active Substance: THEOPHYLLINE
     Indication: Bronchitis chronic
     Dosage: 600 MILLIGRAM, DAILY
     Route: 065

REACTIONS (7)
  - Toxicity to various agents [Unknown]
  - Generalised tonic-clonic seizure [Unknown]
  - Cyanosis [Unknown]
  - Insomnia [Unknown]
  - Appetite disorder [Unknown]
  - Nausea [Unknown]
  - Weight decreased [Unknown]
